FAERS Safety Report 11823337 (Version 1)
Quarter: 2015Q4

REPORT INFORMATION
  Report Type: Spontaneous
  Country: NO (occurrence: NO)
  Receive Date: 20151210
  Receipt Date: 20151210
  Transmission Date: 20160305
  Serious: Yes (Other)
  Sender: FDA-Public Use
  Company Number: NO-ASTRAZENECA-2015SF19472

PATIENT
  Age: 29269 Day
  Sex: Male
  Weight: 85 kg

DRUGS (1)
  1. BRILIQUE [Suspect]
     Active Substance: TICAGRELOR
     Indication: STENT PLACEMENT
     Route: 048
     Dates: start: 20151025, end: 20151105

REACTIONS (1)
  - Apnoea [Recovered/Resolved with Sequelae]

NARRATIVE: CASE EVENT DATE: 20151030
